FAERS Safety Report 8570389 (Version 3)
Quarter: 2012Q4

REPORT INFORMATION
  Report Type: 
  Country: DE (occurrence: DE)
  Receive Date: 20120521
  Receipt Date: 20120829
  Transmission Date: 20130627
  Serious: Yes (Other)
  Sender: FDA-Public Use
  Company Number: PHHY2012DE042173

PATIENT
  Sex: Male

DRUGS (6)
  1. ZOMETA [Suspect]
     Indication: METASTASES TO BONE
     Dosage: 3.5 mg/5 ml, QMO
     Dates: end: 201204
  2. SANDOSTATIN LAR [Suspect]
     Indication: PANCREATIC NEUROENDOCRINE TUMOUR
     Dosage: 30 mg, UNK
     Route: 030
     Dates: start: 20110501
  3. MOXONIDINE [Suspect]
     Indication: HYPERTENSION
     Dosage: UNK UKN, UNK (twice a day)
     Route: 048
  4. PROPIVERINE [Suspect]
     Indication: URINARY INCONTINENCE
     Dosage: 15 mg, daily
     Route: 048
     Dates: start: 201206
  5. NORVASC [Suspect]
     Indication: HYPERTENSION
     Dosage: 5 mg, BID
     Route: 048
  6. METFORMIN [Concomitant]
     Indication: DIABETES MELLITUS
     Dosage: 1000 mg, BID

REACTIONS (4)
  - Circulatory collapse [Recovered/Resolved]
  - Hypotension [Recovered/Resolved]
  - Fluid intake reduced [Recovered/Resolved]
  - Dehydration [Recovered/Resolved]
